FAERS Safety Report 15426384 (Version 4)
Quarter: 2021Q2

REPORT INFORMATION
  Report Type: Report from Study
  Country: CA (occurrence: CA)
  Receive Date: 20180925
  Receipt Date: 20210528
  Transmission Date: 20210716
  Serious: Yes (Hospitalization, Other)
  Sender: FDA-Public Use
  Company Number: CA-TAKEDA-2018TUS019325

PATIENT
  Age: 80 Year
  Sex: Male

DRUGS (5)
  1. BETAMETHASONE. [Concomitant]
     Active Substance: BETAMETHASONE
     Dosage: UNK
     Dates: start: 1993
  2. VEDOLIZUMAB [Suspect]
     Active Substance: VEDOLIZUMAB
     Dosage: 300 MILLIGRAM
     Route: 042
     Dates: start: 20180424
  3. VEDOLIZUMAB [Suspect]
     Active Substance: VEDOLIZUMAB
     Indication: CROHN^S DISEASE
     Dosage: 300 MILLIGRAM
     Route: 042
     Dates: start: 20180424
  4. VEDOLIZUMAB [Suspect]
     Active Substance: VEDOLIZUMAB
     Dosage: 300 MILLIGRAM
     Route: 042
  5. VEDOLIZUMAB [Suspect]
     Active Substance: VEDOLIZUMAB
     Dosage: 300 MILLIGRAM
     Route: 042

REACTIONS (6)
  - Abdominal pain [Not Recovered/Not Resolved]
  - Hiatus hernia [Unknown]
  - Urinary tract infection [Unknown]
  - Abdominal hernia [Unknown]
  - Terminal state [Unknown]
  - Post procedural complication [Unknown]

NARRATIVE: CASE EVENT DATE: 2018
